FAERS Safety Report 8189705-7 (Version None)
Quarter: 2012Q1

REPORT INFORMATION
  Report Type: 
  Country: None (occurrence: None)
  Receive Date: 20120305
  Receipt Date: 20120224
  Transmission Date: 20120608
  Serious: Yes (Other)
  Sender: FDA-Public Use
  Company Number: 2012P1008152

PATIENT
  Sex: Female

DRUGS (4)
  1. PREDNISONE [Suspect]
     Dosage: 10 MG;QD;PO
     Route: 048
  2. IMURAN [Concomitant]
  3. DURAGESIC-100 [Concomitant]
  4. OXYCODONE HCL [Concomitant]

REACTIONS (5)
  - SUICIDAL IDEATION [None]
  - BONE PAIN [None]
  - BONE DISORDER [None]
  - GAIT DISTURBANCE [None]
  - HUNGER [None]
